FAERS Safety Report 7783483-9 (Version None)
Quarter: 2011Q3

REPORT INFORMATION
  Report Type: 
  Country: None (occurrence: None)
  Receive Date: 20110928
  Receipt Date: 20110927
  Transmission Date: 20111222
  Serious: Yes (Hospitalization)
  Sender: FDA-Public Use
  Company Number: FR-PFIZER INC-2011224197

PATIENT
  Age: 41 Year
  Sex: Female

DRUGS (5)
  1. FLUCONAZOLE [Suspect]
     Dosage: 50 MG, DAILY
     Route: 048
     Dates: start: 20091222, end: 20100103
  2. VALACYCLOVIR HYDROCHLORIDE [Suspect]
     Dosage: 500 MG, 2X/DAY
     Route: 048
     Dates: start: 20091222, end: 20091230
  3. ATARAX [Concomitant]
     Dosage: UNK
     Dates: start: 20091222, end: 20091228
  4. DOXYCYCLINE [Suspect]
     Dosage: UNK
     Route: 048
     Dates: start: 20090601, end: 20091001
  5. DOXYCYCLINE [Suspect]
     Dosage: UNK
     Route: 048
     Dates: start: 20091227, end: 20100103

REACTIONS (1)
  - TOXIC EPIDERMAL NECROLYSIS [None]
